FAERS Safety Report 18522555 (Version 1)
Quarter: 2020Q4

REPORT INFORMATION
  Report Type: Spontaneous
  Country: US (occurrence: US)
  Receive Date: 20201119
  Receipt Date: 20201119
  Transmission Date: 20210114
  Serious: No
  Sender: FDA-Public Use
  Company Number: US-TEVA-2020-US-1850333

PATIENT

DRUGS (1)
  1. METOPROLOL SUCCINATE ACTAVIS [Suspect]
     Active Substance: METOPROLOL SUCCINATE
     Route: 065

REACTIONS (6)
  - Product use issue [Unknown]
  - Adverse drug reaction [Unknown]
  - Dry mouth [Unknown]
  - Gait inability [Unknown]
  - Nausea [Unknown]
  - Dizziness [Unknown]
